FAERS Safety Report 12589660 (Version 1)
Quarter: 2016Q3

REPORT INFORMATION
  Report Type: Spontaneous
  Country: UA (occurrence: UA)
  Receive Date: 20160725
  Receipt Date: 20160725
  Transmission Date: 20161109
  Serious: Yes (Other)
  Sender: FDA-Public Use
  Company Number: ALCN2016UA004925

PATIENT
  Age: 43 Year
  Sex: Male

DRUGS (6)
  1. AZARGA [Suspect]
     Active Substance: BRINZOLAMIDE\TIMOLOL MALEATE
     Dosage: 2 DF, QD
     Route: 047
     Dates: start: 20160523
  2. TRAVATAN [Suspect]
     Active Substance: TRAVOPROST
     Indication: PRODUCT USED FOR UNKNOWN INDICATION
     Dosage: 1 DF, QD
     Route: 047
  3. ALPHAGAN P [Suspect]
     Active Substance: BRIMONIDINE TARTRATE
     Indication: PRODUCT USED FOR UNKNOWN INDICATION
     Dosage: 2 DF, QD
     Route: 065
  4. AZARGA [Suspect]
     Active Substance: BRINZOLAMIDE\TIMOLOL MALEATE
     Indication: PRODUCT USED FOR UNKNOWN INDICATION
     Dosage: 2 DF, QD
     Route: 047
  5. AZARGA [Suspect]
     Active Substance: BRINZOLAMIDE\TIMOLOL MALEATE
     Dosage: 2 DF, QD
     Route: 047
  6. TRAVATAN [Suspect]
     Active Substance: TRAVOPROST
     Dosage: 1 DF, QD
     Route: 047

REACTIONS (7)
  - Uveitis [Unknown]
  - Visual acuity reduced [Unknown]
  - Headache [Unknown]
  - Iris adhesions [Unknown]
  - Lenticular opacities [Unknown]
  - Intraocular pressure increased [Recovering/Resolving]
  - Corneal oedema [Unknown]

NARRATIVE: CASE EVENT DATE: 20160523
